FAERS Safety Report 4714038-8 (Version None)
Quarter: 2005Q3

REPORT INFORMATION
  Report Type: 
  Country: None (occurrence: None)
  Receive Date: 20050713
  Receipt Date: 20050701
  Transmission Date: 20060218
  Serious: Yes (Death)
  Sender: FDA-Public Use
  Company Number: 05-03-0497

PATIENT
  Age: 38 Year
  Sex: Female

DRUGS (4)
  1. CLOZAPINE [Suspect]
     Indication: SCHIZOPHRENIA
     Dosage: 100-500MG QD ORAL
     Route: 048
     Dates: start: 20020301, end: 20050201
  2. ZANTAC [Concomitant]
  3. MORPHINE [Concomitant]
  4. DURAGESIC-100 [Concomitant]

REACTIONS (1)
  - INFECTION [None]
